FAERS Safety Report 8160581-1 (Version None)
Quarter: 2012Q1

REPORT INFORMATION
  Report Type: 
  Country: None (occurrence: None)
  Receive Date: 20120223
  Receipt Date: 20120214
  Transmission Date: 20120608
  Serious: Yes (Other)
  Sender: FDA-Public Use
  Company Number: US-ASTRAZENECA-2012SE10360

PATIENT
  Age: 64 Year
  Sex: Female

DRUGS (8)
  1. PLAVIX [Concomitant]
  2. TOPROL-XL [Suspect]
     Route: 048
  3. ZOCOR [Concomitant]
  4. NEXIUM [Suspect]
     Route: 048
  5. IMDUR [Concomitant]
  6. LASIX [Concomitant]
  7. KLOR-CON [Concomitant]
     Dosage: 10ER 10MEQ TAB LEG 3X DAY
  8. GLUCOPHAGE [Concomitant]

REACTIONS (12)
  - CHRONIC OBSTRUCTIVE PULMONARY DISEASE [None]
  - ASCITES [None]
  - ASTHMA [None]
  - NERVE INJURY [None]
  - DIABETES MELLITUS [None]
  - ANAEMIA [None]
  - HYPERTENSION [None]
  - SCIATICA [None]
  - HEPATIC CIRRHOSIS [None]
  - CARDIAC FAILURE CONGESTIVE [None]
  - CEREBROVASCULAR ACCIDENT [None]
  - BACK PAIN [None]
